FAERS Safety Report 9565071 (Version 3)
Quarter: 2014Q1

REPORT INFORMATION
  Report Type: Report from Study
  Country: JP (occurrence: JP)
  Receive Date: 20130930
  Receipt Date: 20140331
  Transmission Date: 20141002
  Serious: Yes (Hospitalization)
  Sender: FDA-Public Use
  Company Number: JP-VERTEX PHARMACEUTICALS INC-AE-2012-010608

PATIENT
  Age: 51 Year
  Sex: Male

DRUGS (14)
  1. VX-950 (TELAPREVIR) [Suspect]
     Indication: CHRONIC HEPATITIS C
     Dosage: 2250 MG, QD
     Route: 048
     Dates: start: 20120706, end: 20120713
  2. REBETOL [Concomitant]
     Dosage: 1000 MG, QD
     Route: 048
     Dates: start: 20120706, end: 20120727
  3. PEGINTRON [Concomitant]
     Dosage: 150 ?G, QW
     Route: 058
     Dates: start: 20120706, end: 20120720
  4. URSO [Concomitant]
     Dosage: 600 MG, QD
     Route: 048
     Dates: start: 20111125
  5. HUMULIN R [Concomitant]
     Dosage: UNK, PRN
     Route: 058
     Dates: start: 20120704, end: 20120716
  6. LENDORMIN DAINIPPO [Concomitant]
     Dosage: 0.5 MG, PRN
     Route: 048
     Dates: start: 20120704
  7. EURAX H [Concomitant]
     Dosage: 10 G, PRN
     Route: 061
     Dates: start: 20120709, end: 20120928
  8. TAKEPRON [Concomitant]
     Dosage: 30 MG, QD
     Route: 048
     Dates: start: 20120710, end: 20120717
  9. NESINA [Concomitant]
     Dosage: 25 MG, QD
     Route: 048
  10. AMARYL [Concomitant]
     Dosage: 2 MG, QD
     Route: 048
  11. LENDORMIN [Concomitant]
     Dosage: 0.25 MG, PRN
     Route: 048
  12. ALLEGRA [Concomitant]
     Dosage: 120 MG, QD
     Route: 048
  13. PRIMPERAN [Concomitant]
     Dosage: 15 MG, QD
     Route: 048
  14. BEZATOL SR [Concomitant]
     Dosage: 400 MG, QD
     Route: 048

REACTIONS (2)
  - Renal disorder [Recovered/Resolved]
  - Hyperuricaemia [Recovering/Resolving]
